FAERS Safety Report 4860047-8 (Version None)
Quarter: 2005Q4

REPORT INFORMATION
  Report Type: 
  Country: None (occurrence: None)
  Receive Date: 20051215
  Receipt Date: 20051202
  Transmission Date: 20060501
  Serious: Yes (Hospitalization, Other)
  Sender: FDA-Public Use
  Company Number: 2005158532

PATIENT
  Age: 82 Year
  Sex: Male

DRUGS (5)
  1. NORVASC [Suspect]
     Indication: HYPERTENSION
     Dosage: 2.5 MG, ORAL
     Route: 048
     Dates: start: 19930101, end: 20051108
  2. ADALAT [Suspect]
     Indication: ILL-DEFINED DISORDER
     Dosage: 10 MG, ORAL
     Route: 048
     Dates: end: 20051108
  3. HARNAL (TAMSULOSIN HYDROCHLORIDE) [Suspect]
     Indication: ILL-DEFINED DISORDER
     Dosage: 0.2 MG, ORAL
     Route: 048
     Dates: end: 20051108
  4. DAONIL (GLIBENCLAMIDE) [Suspect]
     Indication: ILL-DEFINED DISORDER
     Dosage: 2.5 MG, ORAL
     Route: 048
     Dates: end: 20051108
  5. PERSANTIN [Suspect]
     Indication: ILL-DEFINED DISORDER
     Dosage: 50 MG, ORAL
     Route: 048
     Dates: end: 20051108

REACTIONS (2)
  - INTERSTITIAL LUNG DISEASE [None]
  - MALAISE [None]
